FAERS Safety Report 8171309-3 (Version None)
Quarter: 2012Q1

REPORT INFORMATION
  Report Type: 
  Country: None (occurrence: None)
  Receive Date: 20120104
  Receipt Date: 20111118
  Transmission Date: 20120608
  Serious: No
  Sender: FDA-Public Use
  Company Number: 2011HGS-002844

PATIENT
  Age: 61 Year
  Sex: Female

DRUGS (24)
  1. ESTRACE(ESTRADIOL)(ESTRADIOL) [Concomitant]
  2. ESTRADIOL [Concomitant]
  3. ELMIRON(PENTOSAN POLYSULFATE SODIUM)(PENTOSAN POLYSULFATE SODIUM) [Concomitant]
  4. TOPAMAX(TOPIRAMATE)(TOPIRAMATE) [Concomitant]
  5. VITAMIN A(RETINOL)(RETINOL) [Concomitant]
  6. NALTREXONE(NALTREXONE)(NALTREXONE) [Concomitant]
  7. BACLOFEN [Concomitant]
  8. MECLIZINE(MECLOZINE HYDROCHLORIDE)(MECLOZINE HYDROCHLORIDE) [Concomitant]
  9. MELOXICAM [Concomitant]
  10. ZINC(ZINC)(ZINC) [Concomitant]
  11. BENLYSTA [Suspect]
     Indication: SYSTEMIC LUPUS ERYTHEMATOSUS
     Dosage: 10 MG/KG, 1 IN 1 M, INTRAVENOUS DRIP
     Route: 041
     Dates: start: 20111027
  12. ARMOUR THYROID(THYROID) (THYROID) [Concomitant]
  13. TESTOSTERONE(TESTOSTERONE)(TESTOSTERONE) [Concomitant]
  14. DHEA(PRASTERONE) (PRASTERONE) [Concomitant]
  15. SINGULAIR(MONTELUKAST SODIUM) (MONTELUKAST SODIUM) [Concomitant]
  16. VITAMIN E(TOCOPHEROL)(TOCOPHEROL) [Concomitant]
  17. STRONTIUM(STRONTIUM CHLORIDE) (STRONTIUM CHLORIDE) [Concomitant]
  18. PLAQUENIL (HYDROXYCHLOROQUINE SULFATE)(HYDROXYCHLOROQUINE SULFATE) [Concomitant]
  19. TRAZODONE (TRAZODONE) (TRAZODONE) [Concomitant]
  20. PROGESTERONE(PROGESTERONE)(PROGESTERONE) [Concomitant]
  21. DICYCLOMINE (DICYCLOVERINE) (DICYCLOVERINE) [Concomitant]
  22. OMEPRAZOLE [Concomitant]
  23. VITAMIN D(ERGOCALCIFEROL)(ERGOCALCIFEROL) [Concomitant]
  24. TEMAZEPAM [Concomitant]

REACTIONS (2)
  - DEPRESSION [None]
  - ANXIETY [None]
